FAERS Safety Report 4450744-0 (Version None)
Quarter: 2004Q3

REPORT INFORMATION
  Report Type: 
  Country: None (occurrence: None)
  Receive Date: 20040913
  Receipt Date: 20040526
  Transmission Date: 20050211
  Serious: No
  Sender: FDA-Public Use
  Company Number: 2004-BP-04171BP(0)

PATIENT
  Age: 67 Year
  Sex: Female

DRUGS (15)
  1. SPIRIVA [Suspect]
     Indication: DYSPNOEA
     Dosage: 18 MCG (18 MCG), IH
     Dates: start: 20040518
  2. OXYGEN (OXYGEN) [Concomitant]
  3. ADVAIR (SERETIDE MITE) [Concomitant]
  4. THYROID TAB [Concomitant]
  5. LEVSIN (HYOSCYAMINE SULFATE) [Concomitant]
  6. ELIXIR (OPIUM TINCTURE, BENZOATED) [Concomitant]
  7. PHENOBARBITAL TAB [Concomitant]
  8. DURICEF [Concomitant]
  9. MOTRIN [Concomitant]
  10. ZETIA [Concomitant]
  11. ELAVIL [Concomitant]
  12. NORVASC [Concomitant]
  13. DIOVAN HCT (CO-DIOVAN) [Concomitant]
  14. ALLEGRA [Concomitant]
  15. TOPROL-XL [Concomitant]

REACTIONS (4)
  - ARTHRALGIA [None]
  - DIZZINESS [None]
  - JOINT DISLOCATION [None]
  - VISUAL DISTURBANCE [None]
